FAERS Safety Report 21183793 (Version 1)
Quarter: 2022Q3

REPORT INFORMATION
  Report Type: Spontaneous
  Country: FR (occurrence: FR)
  Receive Date: 20220808
  Receipt Date: 20220808
  Transmission Date: 20221027
  Serious: Yes (Hospitalization, Other)
  Sender: FDA-Public Use
  Company Number: None

PATIENT
  Age: 0 Month
  Sex: Male

DRUGS (2)
  1. VIRAMUNE [Suspect]
     Active Substance: NEVIRAPINE
     Indication: Prophylaxis against HIV infection
     Route: 048
     Dates: start: 20220608, end: 20220614
  2. TRUVADA [Suspect]
     Active Substance: EMTRICITABINE\TENOFOVIR DISOPROXIL FUMARATE
     Indication: Prophylaxis against HIV infection
     Dosage: STRENGTH: 200 MG/ 245 MG
     Route: 048

REACTIONS (1)
  - Intestinal obstruction [Recovered/Resolved]

NARRATIVE: CASE EVENT DATE: 20220614
